FAERS Safety Report 16766823 (Version 2)
Quarter: 2020Q2

REPORT INFORMATION
  Report Type: Spontaneous
  Country: PT (occurrence: PT)
  Receive Date: 20190903
  Receipt Date: 20200630
  Transmission Date: 20200713
  Serious: Yes (Other)
  Sender: FDA-Public Use
  Company Number: PT-MYLANLABS-2019M1081291

PATIENT
  Age: 62 Year
  Sex: Male

DRUGS (7)
  1. HEPARIN [Concomitant]
     Active Substance: HEPARIN SODIUM
  2. XARELTO [Interacting]
     Active Substance: RIVAROXABAN
     Indication: DEEP VEIN THROMBOSIS
  3. CLOPIDOGREL [Suspect]
     Active Substance: CLOPIDOGREL BISULFATE
     Indication: ACUTE MYOCARDIAL INFARCTION
     Dosage: UNK
  4. XARELTO [Interacting]
     Active Substance: RIVAROXABAN
     Indication: HEPARIN-INDUCED THROMBOCYTOPENIA
     Dosage: UNK
  5. PANTOPRAZOLE [Concomitant]
     Active Substance: PANTOPRAZOLE
  6. ACETYLSALICYLIC ACID [Suspect]
     Active Substance: ASPIRIN
     Indication: ACUTE MYOCARDIAL INFARCTION
     Dosage: UNK
     Route: 048
  7. GEMCITABINE. [Concomitant]
     Active Substance: GEMCITABINE

REACTIONS (6)
  - Product administration error [Unknown]
  - Product use in unapproved indication [Unknown]
  - Oesophagitis [Unknown]
  - Haematemesis [Unknown]
  - Drug interaction [Unknown]
  - Off label use [Unknown]
